FAERS Safety Report 21481000 (Version 1)
Quarter: 2022Q4

REPORT INFORMATION
  Report Type: Report from Study
  Country: US (occurrence: US)
  Receive Date: 20221019
  Receipt Date: 20221019
  Transmission Date: 20230112
  Serious: Yes (Hospitalization, Other)
  Sender: FDA-Public Use
  Company Number: US-BoehringerIngelheim-2022-BI-169812

PATIENT
  Age: 66 Year
  Sex: Female

DRUGS (7)
  1. GILOTRIF [Suspect]
     Active Substance: AFATINIB
     Indication: Non-small cell lung cancer
     Route: 048
     Dates: start: 20220503
  2. GILOTRIF [Suspect]
     Active Substance: AFATINIB
     Route: 048
     Dates: end: 20220729
  3. TYLENOL [Concomitant]
     Active Substance: ACETAMINOPHEN
     Indication: Product used for unknown indication
  4. BENZONATATE [Concomitant]
     Active Substance: BENZONATATE
     Indication: Product used for unknown indication
  5. SYMBICORT [Concomitant]
     Active Substance: BUDESONIDE\FORMOTEROL FUMARATE DIHYDRATE
     Indication: Product used for unknown indication
  6. ALBUTEROL [Concomitant]
     Active Substance: ALBUTEROL
     Indication: Product used for unknown indication
  7. AMLODIPINE [Concomitant]
     Active Substance: AMLODIPINE BESYLATE
     Indication: Product used for unknown indication

REACTIONS (21)
  - Fall [Unknown]
  - Head injury [Unknown]
  - Brain neoplasm [Unknown]
  - Lung neoplasm malignant [Unknown]
  - Therapeutic product effect decreased [Unknown]
  - COVID-19 [Unknown]
  - Nasopharyngitis [Not Recovered/Not Resolved]
  - Chest discomfort [Not Recovered/Not Resolved]
  - Rash papular [Unknown]
  - Vomiting [Recovered/Resolved]
  - Somnolence [Not Recovered/Not Resolved]
  - Diarrhoea [Recovered/Resolved]
  - Tenderness [Unknown]
  - Faeces soft [Recovered/Resolved]
  - Erythema [Unknown]
  - Muscular weakness [Recovered/Resolved]
  - Clumsiness [Recovered/Resolved]
  - Balance disorder [Recovered/Resolved]
  - Tremor [Recovered/Resolved]
  - Headache [Unknown]
  - Stomatitis [Unknown]

NARRATIVE: CASE EVENT DATE: 20220805
